FAERS Safety Report 14472613 (Version 1)
Quarter: 2018Q1

REPORT INFORMATION
  Report Type: Spontaneous
  Country: US (occurrence: US)
  Receive Date: 20180201
  Receipt Date: 20180201
  Transmission Date: 20180509
  Serious: Yes (Other)
  Sender: FDA-Public Use
  Company Number: US-ALVOGEN-2018-ALVOGEN-094997

PATIENT
  Age: 3 Year
  Sex: Male
  Weight: 16 kg

DRUGS (7)
  1. DILAUDID [Suspect]
     Active Substance: HYDROMORPHONE HYDROCHLORIDE
     Indication: MUCOSAL INFLAMMATION
     Dosage: 0.2 ML/ML, AS NEEDED
     Route: 042
     Dates: start: 20171211
  2. MELPHALAN. [Suspect]
     Active Substance: MELPHALAN
     Indication: PROPHYLAXIS
     Dosage: 40 MG (60 MG/M2)
     Route: 042
     Dates: start: 20171130, end: 20171202
  3. ISAVUCONAZONIUM SULFATE [Suspect]
     Active Substance: ISAVUCONAZONIUM SULFATE
     Indication: ANTIFUNGAL PROPHYLAXIS
     Route: 042
     Dates: start: 20171211
  4. ISAVUCONAZONIUM SULFATE [Suspect]
     Active Substance: ISAVUCONAZONIUM SULFATE
     Indication: ANTIFUNGAL PROPHYLAXIS
     Route: 042
     Dates: start: 20171208, end: 20171210
  5. ETOPOSIDE. [Suspect]
     Active Substance: ETOPOSIDE
     Indication: PROPHYLAXIS
     Dosage: 200 MG (300 MG/M2),
     Route: 042
     Dates: start: 20171130, end: 20171203
  6. CARBOPLATIN. [Suspect]
     Active Substance: CARBOPLATIN
     Indication: PROPHYLAXIS
     Dosage: 250 MG (375 MG/M2)
     Route: 048
     Dates: start: 20171130, end: 20171203
  7. MORPHINE [Suspect]
     Active Substance: MORPHINE
     Indication: MUCOSAL INFLAMMATION
     Route: 065
     Dates: start: 20171210, end: 201712

REACTIONS (4)
  - Febrile neutropenia [Recovered/Resolved]
  - Mucosal infection [Recovered/Resolved]
  - Epistaxis [Recovered/Resolved]
  - Pruritus [Recovered/Resolved]

NARRATIVE: CASE EVENT DATE: 20171210
